FAERS Safety Report 14402363 (Version 1)
Quarter: 2018Q1

REPORT INFORMATION
  Report Type: Spontaneous
  Country: SA (occurrence: SA)
  Receive Date: 20180116
  Receipt Date: 20180116
  Transmission Date: 20180509
  Serious: Yes (Hospitalization)
  Sender: FDA-Public Use
  Company Number: None

PATIENT
  Age: 43 Year
  Sex: Male

DRUGS (1)
  1. MELOXICAM. [Suspect]
     Active Substance: MELOXICAM

REACTIONS (3)
  - Abdominal pain [None]
  - Gastrointestinal perforation [None]
  - Gastric perforation [None]

NARRATIVE: CASE EVENT DATE: 20170605
